FAERS Safety Report 8332500-6 (Version None)
Quarter: 2012Q2

REPORT INFORMATION
  Report Type: 
  Country: None (occurrence: None)
  Receive Date: 20120503
  Receipt Date: 20120430
  Transmission Date: 20120825
  Serious: No
  Sender: FDA-Public Use
  Company Number: US-PFIZER INC-2012106634

PATIENT
  Sex: Female

DRUGS (5)
  1. TAMOXIFEN CITRATE [Suspect]
     Dosage: UNK
  2. GABAPENTIN [Suspect]
     Dosage: UNK
  3. CYCLOBENZAPRINE [Suspect]
     Dosage: UNK
  4. OXYCODONE HCL [Suspect]
     Dosage: UNK
  5. NAPROXEN (ALEVE) [Suspect]
     Dosage: UNK

REACTIONS (1)
  - DRUG HYPERSENSITIVITY [None]
